FAERS Safety Report 5610337-6 (Version None)
Quarter: 2008Q1

REPORT INFORMATION
  Report Type: 
  Country: None (occurrence: None)
  Receive Date: 20080128
  Receipt Date: 20071003
  Transmission Date: 20080703
  Serious: Yes (Other)
  Sender: FDA-Public Use
  Company Number: 2007S1000389

PATIENT
  Age: 58 Year
  Sex: Female
  Weight: 50.9 kg

DRUGS (20)
  1. CUBICIN [Suspect]
     Indication: ENTEROCOCCAL BACTERAEMIA
     Dosage: 8 MG/KG; Q48H; IV
     Route: 042
     Dates: start: 20070101, end: 20070111
  2. VANCOMYCIN [Concomitant]
  3. MEROPENEM [Concomitant]
  4. METRONIDAZOLE HCL [Concomitant]
  5. SEPTRA DS [Concomitant]
  6. AZITHROMYCIN [Concomitant]
  7. FLUCONAZOLE [Concomitant]
  8. INSULIN [Concomitant]
  9. METHYLPREDNISOLONE [Concomitant]
  10. FUROSEMIDE [Concomitant]
  11. CLONIDINE [Concomitant]
  12. VANCOMYCIN [Concomitant]
  13. CEFEPIME [Concomitant]
  14. ACYCLOVIR [Concomitant]
  15. ALBUMIN (HUMAN) [Concomitant]
  16. CIPROFLOXACIN [Concomitant]
  17. CYCLOSPORINE [Concomitant]
  18. TPN [Concomitant]
  19. DOPAMINE HCL [Concomitant]
  20. FENTANYL [Concomitant]

REACTIONS (8)
  - ACUTE GRAFT VERSUS HOST DISEASE IN INTESTINE [None]
  - CLOSTRIDIUM DIFFICILE COLITIS [None]
  - CONDITION AGGRAVATED [None]
  - GENERAL PHYSICAL HEALTH DETERIORATION [None]
  - MALNUTRITION [None]
  - MULTI-ORGAN FAILURE [None]
  - PLATELET COUNT DECREASED [None]
  - WHITE BLOOD CELL COUNT DECREASED [None]
